FAERS Safety Report 8487801-8 (Version None)
Quarter: 2012Q2

REPORT INFORMATION
  Report Type: 
  Country: None (occurrence: None)
  Receive Date: 20120627
  Receipt Date: 20120615
  Transmission Date: 20120825
  Serious: Yes (Other)
  Sender: FDA-Public Use
  Company Number: GGEL20120600791

PATIENT
  Sex: Female

DRUGS (1)
  1. METFORMIN HCL [Suspect]
     Indication: DIABETES MELLITUS

REACTIONS (3)
  - CONTINUOUS HAEMODIAFILTRATION [None]
  - TOXICITY TO VARIOUS AGENTS [None]
  - HAEMODIALYSIS [None]
